FAERS Safety Report 8564697-7 (Version None)
Quarter: 2012Q3

REPORT INFORMATION
  Report Type: 
  Country: None (occurrence: None)
  Receive Date: 20120803
  Receipt Date: 20120725
  Transmission Date: 20120928
  Serious: Yes (Other)
  Sender: FDA-Public Use
  Company Number: US-ELI_LILLY_AND_COMPANY-US201203004786

PATIENT
  Age: 77 Year
  Sex: Female
  Weight: 69.841 kg

DRUGS (1)
  1. HUMATROPE [Suspect]
     Indication: HYPOTHALAMO-PITUITARY DISORDER
     Dosage: 0.4 MG, QD
     Route: 058
     Dates: start: 20080301, end: 20120301

REACTIONS (1)
  - PITUITARY TUMOUR RECURRENT [None]
